FAERS Safety Report 21925381 (Version 2)
Quarter: 2024Q1

REPORT INFORMATION
  Report Type: Spontaneous
  Country: US (occurrence: US)
  Receive Date: 20230130
  Receipt Date: 20240207
  Transmission Date: 20240410
  Serious: Yes (Death, Hospitalization)
  Sender: FDA-Public Use
  Company Number: US-AMNEAL PHARMACEUTICALS-2023-AMRX-00232

PATIENT
  Age: 67 Year
  Sex: Male

DRUGS (3)
  1. RYTARY [Suspect]
     Active Substance: CARBIDOPA\LEVODOPA
     Indication: Parkinson^s disease
     Dosage: 2 CAPSULES, (36.25-145) 3 /DAY
     Route: 048
  2. RYTARY [Suspect]
     Active Substance: CARBIDOPA\LEVODOPA
     Dosage: 61.25-245 MG 1 CAP TID AND 48.75-195 MG 1 CAP QID
     Route: 048
     Dates: start: 20220909
  3. RYTARY [Suspect]
     Active Substance: CARBIDOPA\LEVODOPA
     Dosage: 61.25-245 MG 1 CAP TID AND 48.75-195 MG 1 CAP QD
     Route: 048

REACTIONS (2)
  - Adverse event [Fatal]
  - Disorientation [Recovered/Resolved]

NARRATIVE: CASE EVENT DATE: 20230117
